FAERS Safety Report 18586145 (Version 1)
Quarter: 2020Q4

REPORT INFORMATION
  Report Type: Spontaneous
  Country: NL (occurrence: NL)
  Receive Date: 20201207
  Receipt Date: 20201207
  Transmission Date: 20210114
  Serious: Yes (Hospitalization)
  Sender: FDA-Public Use
  Company Number: NL-ASTRAZENECA-2020SF58238

PATIENT
  Age: 61 Year
  Sex: Female
  Weight: 77 kg

DRUGS (6)
  1. OMEPRAZOL [Concomitant]
     Active Substance: OMEPRAZOLE
  2. METFORMINE [Concomitant]
     Active Substance: METFORMIN HYDROCHLORIDE
  3. ATORVASTATINE [Concomitant]
     Active Substance: ATORVASTATIN
  4. FORXIGA [Suspect]
     Active Substance: DAPAGLIFLOZIN
     Indication: DIABETES MELLITUS
     Route: 048
     Dates: start: 20201023, end: 20201029
  5. LEVOTHYROXINE. [Concomitant]
     Active Substance: LEVOTHYROXINE
  6. DESLORATADINE. [Concomitant]
     Active Substance: DESLORATADINE

REACTIONS (1)
  - Euglycaemic diabetic ketoacidosis [Recovered/Resolved]

NARRATIVE: CASE EVENT DATE: 20201028
